FAERS Safety Report 7479649-8 (Version None)
Quarter: 2011Q2

REPORT INFORMATION
  Report Type: 
  Country: None (occurrence: None)
  Receive Date: 20110513
  Receipt Date: 20110428
  Transmission Date: 20111010
  Serious: Yes (Hospitalization)
  Sender: FDA-Public Use
  Company Number: US-B.I. PHARMACEUTICALS,INC./RIDGEFIELD-2011-BP-12119BP

PATIENT
  Sex: Male

DRUGS (7)
  1. ALBUTEROL [Concomitant]
  2. PROSCAR [Concomitant]
     Dosage: 5 MG
  3. ASPIRIN [Concomitant]
     Dosage: 81 MG
  4. LOVAZA [Concomitant]
  5. SPIRIVA [Suspect]
     Indication: CHRONIC OBSTRUCTIVE PULMONARY DISEASE
  6. SIMVASTATIN [Concomitant]
     Dosage: 5 MG
  7. GLUCOSAMINE [Concomitant]

REACTIONS (1)
  - DRUG EFFECT DECREASED [None]
